FAERS Safety Report 7771865-0 (Version None)
Quarter: 2011Q3

REPORT INFORMATION
  Report Type: 
  Country: None (occurrence: None)
  Receive Date: 20110922
  Receipt Date: 20100816
  Transmission Date: 20111222
  Serious: No
  Sender: FDA-Public Use
  Company Number: US-ASTRAZENECA-2010SE38467

PATIENT
  Age: 21 Year
  Sex: Male
  Weight: 74.4 kg

DRUGS (1)
  1. SEROQUEL [Suspect]
     Route: 048
     Dates: start: 20100601, end: 20100701

REACTIONS (10)
  - FATIGUE [None]
  - INCREASED APPETITE [None]
  - VISION BLURRED [None]
  - MIGRAINE [None]
  - DIZZINESS [None]
  - SYNCOPE [None]
  - FEELING ABNORMAL [None]
  - FACE INJURY [None]
  - WEIGHT INCREASED [None]
  - ASTHENIA [None]
